FAERS Safety Report 9915264 (Version 1)
Quarter: 2014Q1

REPORT INFORMATION
  Report Type: Report from Study
  Country: US (occurrence: US)
  Receive Date: 20140221
  Receipt Date: 20140221
  Transmission Date: 20141002
  Serious: Yes (Other)
  Sender: FDA-Public Use
  Company Number: US-ROCHE-1235172

PATIENT
  Sex: Female
  Weight: 64.92 kg

DRUGS (17)
  1. AVASTIN [Suspect]
     Indication: PRODUCT USED FOR UNKNOWN INDICATION
     Route: 065
  2. LUCENTIS [Suspect]
     Indication: AGE-RELATED MACULAR DEGENERATION
     Route: 050
  3. LUCENTIS [Suspect]
     Indication: DETACHMENT OF RETINAL PIGMENT EPITHELIUM
  4. LUCENTIS [Suspect]
     Indication: CYSTOID MACULAR OEDEMA
  5. LUCENTIS [Suspect]
     Indication: VITREOUS DETACHMENT
  6. LUCENTIS [Suspect]
     Indication: INTRAOCULAR LENS IMPLANT
  7. DIOVAN [Concomitant]
     Route: 065
  8. PLAVIX [Concomitant]
     Route: 065
  9. IMDUR [Concomitant]
     Route: 065
  10. ACETYLSALICYLIC ACID [Concomitant]
     Route: 065
  11. HYDROCHLOROTHIAZIDE [Concomitant]
     Route: 065
  12. TOPROL XL [Concomitant]
     Route: 065
  13. LIPITOR [Concomitant]
     Route: 065
  14. TOFRANIL [Concomitant]
     Route: 065
  15. FLAXSEED OIL [Concomitant]
     Route: 065
  16. VICODIN [Concomitant]
     Route: 065
  17. XANAX [Concomitant]

REACTIONS (4)
  - Macular oedema [Unknown]
  - Vision blurred [Unknown]
  - Photopsia [Unknown]
  - Retinal disorder [Unknown]
